FAERS Safety Report 4507326-1 (Version None)
Quarter: 2004Q4

REPORT INFORMATION
  Report Type: 
  Country: None (occurrence: None)
  Receive Date: 20041025
  Receipt Date: 20040726
  Transmission Date: 20050328
  Serious: Yes (Other)
  Sender: FDA-Public Use
  Company Number: US-JNJFOC-20040707089

PATIENT
  Age: 27 Year
  Sex: Male

DRUGS (5)
  1. REMICADE [Suspect]
     Indication: JUVENILE ARTHRITIS
     Dosage: 300 MG, INTRAVENOUS
     Route: 042
     Dates: start: 20030601, end: 20030601
  2. PREDNISONE [Concomitant]
  3. FOSAMAX [Concomitant]
  4. COUMADIN [Concomitant]
  5. CELEBREX [Concomitant]

REACTIONS (1)
  - HODGKIN'S DISEASE [None]
